FAERS Safety Report 14180626 (Version 4)
Quarter: 2018Q1

REPORT INFORMATION
  Report Type: Report from Study
  Country: IT (occurrence: IT)
  Receive Date: 20171111
  Receipt Date: 20180105
  Transmission Date: 20180508
  Serious: Yes (Hospitalization)
  Sender: FDA-Public Use
  Company Number: IT-TEVA-822977ACC

PATIENT
  Age: 22 Year
  Sex: Female

DRUGS (3)
  1. ASPIRINA - 400 MG COMPRESSE EFFERVESCENTI CON VITAMINA C [Suspect]
     Active Substance: ACETAMINOPHEN\ASCORBIC ACID
     Indication: INTENTIONAL OVERDOSE
     Route: 048
     Dates: start: 20170924, end: 20170924
  2. ALPRAZOLAM. [Suspect]
     Active Substance: ALPRAZOLAM
     Indication: INTENTIONAL OVERDOSE
     Route: 048
     Dates: start: 20170924, end: 20170924
  3. CIPROXIN - 500 MG COMPRESSE RIVESTITE - BAYER S.P.A. [Suspect]
     Active Substance: CIPROFLOXACIN
     Indication: INTENTIONAL OVERDOSE
     Route: 048
     Dates: start: 20170924, end: 20170924

REACTIONS (4)
  - Drug abuse [Recovered/Resolved]
  - Bradyphrenia [Recovered/Resolved]
  - Hypokinesia [Recovered/Resolved]
  - Intentional overdose [Unknown]

NARRATIVE: CASE EVENT DATE: 20170924
